FAERS Safety Report 5607314-8 (Version None)
Quarter: 2008Q1

REPORT INFORMATION
  Report Type: 
  Country: None (occurrence: None)
  Receive Date: 20080130
  Receipt Date: 20080117
  Transmission Date: 20080703
  Serious: Yes (Hospitalization)
  Sender: FDA-Public Use
  Company Number: US-JNJFOC-20080104483

PATIENT
  Age: 7 Year
  Sex: Male
  Weight: 22.68 kg

DRUGS (2)
  1. CHILDRENS TYLENOL PLUS FLU BUBBLEGUM [Suspect]
     Indication: PHARYNGOLARYNGEAL PAIN
     Dosage: 7.5 ML ONCE EVERY 4-6 HOURS
  2. CHILDRENS TYLENOL PLUS FLU BUBBLEGUM [Suspect]
     Indication: HEADACHE
     Dosage: 7.5 ML ONCE EVERY 4-6 HOURS

REACTIONS (2)
  - EXFOLIATIVE RASH [None]
  - RASH [None]
